FAERS Safety Report 8147063-8 (Version None)
Quarter: 2012Q1

REPORT INFORMATION
  Report Type: 
  Country: None (occurrence: None)
  Receive Date: 20120218
  Receipt Date: 20110118
  Transmission Date: 20120608
  Serious: No
  Sender: FDA-Public Use
  Company Number: US-ALLERGAN-1100256US

PATIENT
  Age: 64 Year
  Sex: Female

DRUGS (10)
  1. SYNTHROID [Concomitant]
  2. BOTOX COSMETIC [Suspect]
     Indication: SKIN WRINKLING
     Dosage: 22 UNITS, SINGLE
     Route: 030
     Dates: start: 20110106, end: 20110106
  3. LITHIUM CARBONATE [Concomitant]
  4. CELLIDRIN [Concomitant]
  5. LAMICTAL [Concomitant]
  6. PROPRANOLOL [Concomitant]
  7. ZYRTEC [Concomitant]
  8. AMITACON [Concomitant]
  9. RANITIDINE [Concomitant]
  10. ZOLPIDEM [Concomitant]

REACTIONS (3)
  - HYPOAESTHESIA [None]
  - PARAESTHESIA [None]
  - FINE MOTOR DELAY [None]
